FAERS Safety Report 21289938 (Version 8)
Quarter: 2023Q2

REPORT INFORMATION
  Report Type: Spontaneous
  Country: US (occurrence: US)
  Receive Date: 20220902
  Receipt Date: 20230606
  Transmission Date: 20230721
  Serious: Yes (Hospitalization)
  Sender: FDA-Public Use
  Company Number: US-KARYOPHARM-2022KPT000965

PATIENT

DRUGS (20)
  1. XPOVIO [Suspect]
     Active Substance: SELINEXOR
     Indication: Plasma cell myeloma
     Dosage: 80 MG, WEEKLY
     Route: 048
     Dates: start: 202208, end: 20230428
  2. XPOVIO [Suspect]
     Active Substance: SELINEXOR
     Dosage: 80 MG, WEEKLY FOR 3 WEEKS ON, 1 WEEK OFF
     Route: 048
     Dates: start: 202305, end: 202305
  3. ALBUTEROL [Concomitant]
     Active Substance: ALBUTEROL
  4. ALOXI [Concomitant]
     Active Substance: PALONOSETRON HYDROCHLORIDE
  5. AMIODARONE [Concomitant]
     Active Substance: AMIODARONE
  6. CYMBALTA [Concomitant]
     Active Substance: DULOXETINE HYDROCHLORIDE
  7. DEXAMETHASONE [Concomitant]
     Active Substance: DEXAMETHASONE
  8. ICOSAPENT [Concomitant]
     Active Substance: ICOSAPENT
  9. KYPROLIS [Concomitant]
     Active Substance: CARFILZOMIB
  10. LIDOCAINE\PRILOCAINE [Concomitant]
     Active Substance: LIDOCAINE\PRILOCAINE
  11. LOSARTAN [Concomitant]
     Active Substance: LOSARTAN
  12. METOPROLOL [Concomitant]
     Active Substance: METOPROLOL
  13. ONDANSETRON [Concomitant]
     Active Substance: ONDANSETRON
  14. PANTOPRAZOLE [Concomitant]
     Active Substance: PANTOPRAZOLE
  15. REPATHA [Concomitant]
     Active Substance: EVOLOCUMAB
  16. VALACYCLOVIR HYDROCHLORIDE [Concomitant]
     Active Substance: VALACYCLOVIR HYDROCHLORIDE
  17. XARELTO [Concomitant]
     Active Substance: RIVAROXABAN
  18. AMPICILLIN [Concomitant]
     Active Substance: AMPICILLIN
  19. CEPHALEXIN [Concomitant]
     Active Substance: CEPHALEXIN
  20. POTASSIUM [Concomitant]
     Active Substance: POTASSIUM

REACTIONS (11)
  - Cellulitis [Not Recovered/Not Resolved]
  - Escherichia infection [Unknown]
  - Headache [Unknown]
  - Depressed mood [Unknown]
  - Haematoma [Unknown]
  - Nausea [Not Recovered/Not Resolved]
  - Fatigue [Not Recovered/Not Resolved]
  - Decreased appetite [Not Recovered/Not Resolved]
  - Asthenia [Unknown]
  - Dyspnoea [Not Recovered/Not Resolved]
  - Constipation [Unknown]

NARRATIVE: CASE EVENT DATE: 20220101
